FAERS Safety Report 8950362 (Version 1)
Quarter: 2012Q4

REPORT INFORMATION
  Report Type: Spontaneous
  Country: US (occurrence: None)
  Receive Date: 20121130
  Receipt Date: 20121130
  Transmission Date: 20130627
  Serious: Yes (Other)
  Sender: FDA-Public Use
  Company Number: None

PATIENT
  Age: 72 Year
  Sex: Female
  Weight: 58.9 kg

DRUGS (3)
  1. DAPSONE [Suspect]
     Indication: PNEUMOCYSTIS CARINII PNEUMONIA
     Route: 048
     Dates: start: 20121024, end: 20121108
  2. DAPSONE [Suspect]
     Indication: PROPHYLAXIS
     Route: 048
     Dates: start: 20121024, end: 20121108
  3. RASBURICASE [Suspect]
     Indication: HYPERURICEMIA
     Route: 042
     Dates: start: 20121024, end: 20121024

REACTIONS (5)
  - Hypercalcaemia [None]
  - Hyperuricaemia [None]
  - Renal failure [None]
  - Respiratory distress [None]
  - Fluid overload [None]
